FAERS Safety Report 6738032-0 (Version None)
Quarter: 2010Q2

REPORT INFORMATION
  Report Type: 
  Country: None (occurrence: None)
  Receive Date: 20100524
  Receipt Date: 20100512
  Transmission Date: 20101027
  Serious: Yes (Other)
  Sender: FDA-Public Use
  Company Number: US-BRACCO-004468

PATIENT
  Sex: Male

DRUGS (28)
  1. PROHANCE [Suspect]
     Indication: DIAGNOSTIC PROCEDURE
  2. MAGNEVIST [Suspect]
     Indication: NUCLEAR MAGNETIC RESONANCE IMAGING
     Dates: start: 20061017, end: 20061017
  3. MAGNEVIST [Suspect]
     Dates: start: 20060519, end: 20060519
  4. MAGNEVIST [Suspect]
     Indication: NUCLEAR MAGNETIC RESONANCE IMAGING BRAIN
     Dates: start: 20061013, end: 20061013
  5. OMNISCAN [Suspect]
     Indication: FISTULOGRAM
     Route: 042
     Dates: start: 20060804, end: 20060804
  6. GADOLINIUM [Suspect]
     Indication: NUCLEAR MAGNETIC RESONANCE IMAGING
     Route: 042
     Dates: start: 20060805, end: 20060805
  7. LYRICA [Concomitant]
  8. ARANESP [Concomitant]
  9. FERROUS SULFATE TAB [Concomitant]
     Dates: start: 20060812
  10. SYNTHROID [Concomitant]
  11. PROCRIT [Concomitant]
  12. SEVELAMER [Concomitant]
  13. K-DUR [Concomitant]
  14. TRENTAL [Concomitant]
  15. ATENOLOL [Concomitant]
  16. VENOFER [Concomitant]
     Route: 042
     Dates: start: 20061016
  17. CLONIDINE [Concomitant]
  18. PROCARDIA XL [Concomitant]
  19. LIPITOR [Concomitant]
  20. COREG [Concomitant]
  21. LANTUS [Concomitant]
  22. ACTOS [Concomitant]
  23. ZYVOX [Concomitant]
  24. VANCOMYCIN [Concomitant]
  25. STARLIX [Concomitant]
  26. ACCUPRIL [Concomitant]
  27. COUMADIN [Concomitant]
  28. LASIX [Concomitant]

REACTIONS (1)
  - NEPHROGENIC SYSTEMIC FIBROSIS [None]
